APPROVED DRUG PRODUCT: LAMOTRIGINE
Active Ingredient: LAMOTRIGINE
Strength: 150MG
Dosage Form/Route: TABLET;ORAL
Application: A204499 | Product #003 | TE Code: AB
Applicant: IPCA LABORATORIES LTD
Approved: Sep 26, 2024 | RLD: No | RS: No | Type: RX